FAERS Safety Report 4510779-6 (Version None)
Quarter: 2004Q4

REPORT INFORMATION
  Report Type: 
  Country: None (occurrence: None)
  Receive Date: 20041122
  Receipt Date: 20041105
  Transmission Date: 20050328
  Serious: Yes (Death)
  Sender: FDA-Public Use
  Company Number: 210491

PATIENT
  Age: 56 Year
  Sex: Female
  Weight: 64 kg

DRUGS (4)
  1. HERCEPTIN [Suspect]
     Indication: BREAST CANCER
  2. TAXOTERE [Suspect]
     Indication: BREAST CANCER METASTATIC
  3. CLODRONATE SODIUM (CLODRONIC ACID) [Concomitant]
  4. HEPAREGAN (TIMONACIC) [Concomitant]

REACTIONS (10)
  - CARDIOVASCULAR DISORDER [None]
  - DERMATITIS EXFOLIATIVE [None]
  - DISSEMINATED INTRAVASCULAR COAGULATION [None]
  - NEUTROPENIA [None]
  - PYREXIA [None]
  - RESPIRATORY FAILURE [None]
  - SKIN BACTERIAL INFECTION [None]
  - SKIN HYPERPIGMENTATION [None]
  - SKIN REACTION [None]
  - THROMBOCYTOPENIA [None]
